FAERS Safety Report 17856054 (Version 1)
Quarter: 2020Q2

REPORT INFORMATION
  Report Type: Spontaneous
  Country: US (occurrence: US)
  Receive Date: 20200603
  Receipt Date: 20200603
  Transmission Date: 20200714
  Serious: Yes (Life-Threatening, Hospitalization, Other)
  Sender: FDA-Public Use
  Company Number: None

PATIENT
  Age: 65 Year
  Sex: Female
  Weight: 102.5 kg

DRUGS (1)
  1. APIXABAN [Suspect]
     Active Substance: APIXABAN
     Indication: ATRIAL FIBRILLATION
     Route: 048
     Dates: end: 20200518

REACTIONS (9)
  - Hyperhidrosis [None]
  - Blood pressure decreased [None]
  - Haematemesis [None]
  - Shock haemorrhagic [None]
  - Anaemia [None]
  - Cold sweat [None]
  - Hypoxia [None]
  - Pulseless electrical activity [None]
  - Malaise [None]

NARRATIVE: CASE EVENT DATE: 20200518
